FAERS Safety Report 9753896 (Version 2)
Quarter: 2013Q4

REPORT INFORMATION
  Report Type: Spontaneous
  Country: US (occurrence: US)
  Receive Date: 20131213
  Receipt Date: 20131213
  Transmission Date: 20140711
  Serious: No
  Sender: FDA-Public Use
  Company Number: US-GILEAD-2010-0027011

PATIENT
  Sex: Female
  Weight: 65.77 kg

DRUGS (4)
  1. LETAIRIS [Suspect]
     Indication: PULMONARY ARTERIAL HYPERTENSION
     Route: 048
     Dates: start: 20071004
  2. POTASSIUM CL [Concomitant]
  3. LASIX [Concomitant]
  4. REVATIO [Concomitant]

REACTIONS (2)
  - Pruritus [Unknown]
  - Rash pruritic [Unknown]
